FAERS Safety Report 8202286-4 (Version None)
Quarter: 2012Q1

REPORT INFORMATION
  Report Type: 
  Country: None (occurrence: None)
  Receive Date: 20120312
  Receipt Date: 20120301
  Transmission Date: 20120608
  Serious: Yes (Hospitalization, Other)
  Sender: FDA-Public Use
  Company Number: US-ELI_LILLY_AND_COMPANY-US201203000850

PATIENT
  Age: 54 Year
  Sex: Male

DRUGS (9)
  1. HUMULIN 70/30 [Suspect]
     Indication: TYPE 2 DIABETES MELLITUS
     Dosage: UNK
     Dates: start: 20100101
  2. TRAMADOL HCL [Concomitant]
     Dosage: 50 MG, UNKNOWN
  3. PANTOPRAZOLE [Concomitant]
     Dosage: 40 MG, UNK
  4. ZYRTEC [Concomitant]
  5. PROPRANOLOL [Concomitant]
     Dosage: 10 MG, UNKNOWN
  6. LACTULOSE [Concomitant]
     Dosage: 10 G, UNKNOWN
  7. HUMALOG MIX 75/25 [Suspect]
     Indication: TYPE 2 DIABETES MELLITUS
     Dosage: UNK
     Dates: start: 20091201
  8. NOVOLIN 30R                        /00806401/ [Concomitant]
  9. CIPROFLOXACIN [Concomitant]
     Dosage: 750 MG, WEEKLY (1/W)

REACTIONS (12)
  - LOCALISED INTRAABDOMINAL FLUID COLLECTION [None]
  - DYSPNOEA [None]
  - MALAISE [None]
  - HEPATIC FAILURE [None]
  - CHEST PAIN [None]
  - HEPATIC CIRRHOSIS [None]
  - PRURITUS [None]
  - MEMORY IMPAIRMENT [None]
  - WEIGHT INCREASED [None]
  - BLOOD GLUCOSE INCREASED [None]
  - UMBILICAL HERNIA [None]
  - HEPATITIS C [None]
